FAERS Safety Report 23959507 (Version 1)
Quarter: 2024Q2

REPORT INFORMATION
  Report Type: Spontaneous
  Country: BR (occurrence: BR)
  Receive Date: 20240611
  Receipt Date: 20240611
  Transmission Date: 20240715
  Serious: Yes (Other)
  Sender: FDA-Public Use
  Company Number: BR-PHATHOM PHARMACEUTICALS INC.-2024PHT00413

PATIENT
  Sex: Male

DRUGS (1)
  1. VONOPRAZAN FUMARATE [Suspect]
     Active Substance: VONOPRAZAN FUMARATE
     Indication: Gastrointestinal disorder
     Dosage: 10 MG
     Route: 065

REACTIONS (5)
  - Brain neoplasm [Unknown]
  - Symptom recurrence [Unknown]
  - Off label use [Unknown]
  - General physical health deterioration [Unknown]
  - Product prescribing error [Unknown]
